FAERS Safety Report 13009024 (Version 1)
Quarter: 2016Q4

REPORT INFORMATION
  Report Type: Spontaneous
  Country: US (occurrence: US)
  Receive Date: 20161208
  Receipt Date: 20161208
  Transmission Date: 20170207
  Serious: Yes (Other)
  Sender: FDA-Public Use
  Company Number: US-CITRON PHARMA LLC-B16-0040-AE

PATIENT
  Age: 37 Year
  Sex: Female

DRUGS (1)
  1. FURADANTIN  ORAL SUSPENSION [Suspect]
     Active Substance: NITROFURANTOIN
     Indication: URINARY TRACT INFECTION
     Dosage: 100 MG, QD
     Route: 065

REACTIONS (6)
  - Chest discomfort [Recovered/Resolved]
  - Cough [Recovered/Resolved]
  - Pneumonia [Recovered/Resolved]
  - Lung infiltration [Recovered/Resolved]
  - Traumatic lung injury [Recovered/Resolved]
  - Interstitial lung disease [Recovered/Resolved]
